FAERS Safety Report 7551122-8 (Version None)
Quarter: 2011Q2

REPORT INFORMATION
  Report Type: 
  Country: None (occurrence: None)
  Receive Date: 20110616
  Receipt Date: 20110602
  Transmission Date: 20111010
  Serious: Yes (Hospitalization, Other)
  Sender: FDA-Public Use
  Company Number: US-ELI_LILLY_AND_COMPANY-US201006004404

PATIENT
  Sex: Female

DRUGS (5)
  1. FORTEO [Suspect]
     Dosage: 20 UG, QD
     Dates: end: 20110501
  2. ANTIHYPERTENSIVES [Concomitant]
     Dosage: UNK
  3. FORTEO [Suspect]
     Indication: OSTEOPOROSIS
     Dosage: 20 UG, DAILY (1/D)
     Route: 065
     Dates: start: 20100501
  4. HUMIRA [Concomitant]
  5. VITAMIN TAB [Concomitant]

REACTIONS (10)
  - PANCREATIC DISORDER [None]
  - FEELING ABNORMAL [None]
  - DIZZINESS [None]
  - DIARRHOEA [None]
  - ABDOMINAL PAIN UPPER [None]
  - BACK PAIN [None]
  - APPETITE DISORDER [None]
  - GASTRIC DILATATION [None]
  - EYE DISORDER [None]
  - RETINAL DISORDER [None]
